FAERS Safety Report 25669582 (Version 2)
Quarter: 2025Q3

REPORT INFORMATION
  Report Type: Spontaneous
  Country: US (occurrence: US)
  Receive Date: 20250812
  Receipt Date: 20250829
  Transmission Date: 20251021
  Serious: Yes (Life-Threatening, Other)
  Sender: BIOVITRUM
  Company Number: US-BIOVITRUM-2025-US-011039

PATIENT
  Age: 20 Month
  Sex: Female

DRUGS (6)
  1. EMAPALUMAB [Suspect]
     Active Substance: EMAPALUMAB
     Indication: Haemophagocytic lymphohistiocytosis
     Route: 042
     Dates: start: 20250808
  2. EMAPALUMAB [Suspect]
     Active Substance: EMAPALUMAB
     Indication: Still^s disease
     Route: 042
  3. EMAPALUMAB [Suspect]
     Active Substance: EMAPALUMAB
     Route: 042
  4. EMAPALUMAB [Suspect]
     Active Substance: EMAPALUMAB
     Route: 042
  5. ANAKINRA [Suspect]
     Active Substance: ANAKINRA
     Indication: Haemophagocytic lymphohistiocytosis
  6. ANAKINRA [Suspect]
     Active Substance: ANAKINRA
     Indication: Still^s disease

REACTIONS (6)
  - Gastrointestinal haemorrhage [Unknown]
  - Off label use [Not Recovered/Not Resolved]
  - Leukocytosis [Not Recovered/Not Resolved]
  - Neutropenia [Not Recovered/Not Resolved]
  - Platelet count abnormal [Unknown]
  - Bone marrow infiltration [Unknown]

NARRATIVE: CASE EVENT DATE: 20250808
